FAERS Safety Report 3722501 (Version 1)
Quarter: 2020Q3

REPORT INFORMATION
  Report Type: Spontaneous
  Country: US (occurrence: None)
  Receive Date: 20011015
  Receipt Date: 20011015
  Transmission Date: 20201105
  Serious: No
  Sender: FDA-Public Use
  Company Number: None

PATIENT

DRUGS (2)
  1. MIDAZOLAM HYDROCHLORIDE. [Suspect]
     Active Substance: MIDAZOLAM HYDROCHLORIDE
  2. EPHEDRINE. [Suspect]
     Active Substance: EPHEDRINE

REACTIONS (1)
  - Medication error [None]

NARRATIVE: CASE EVENT DATE: 20011015
